FAERS Safety Report 4394654-6 (Version None)
Quarter: 2004Q3

REPORT INFORMATION
  Report Type: 
  Country: None (occurrence: None)
  Receive Date: 20040707
  Receipt Date: 20040623
  Transmission Date: 20050211
  Serious: Yes (Death, Hospitalization)
  Sender: FDA-Public Use
  Company Number: US-JNJFOC-20040401309

PATIENT
  Age: 72 Year
  Sex: Male
  Weight: 87.9978 kg

DRUGS (18)
  1. REMICADE [Suspect]
     Indication: RHEUMATOID ARTHRITIS
     Dosage: 3 MG/KG, INTRAVENOUS
     Route: 042
     Dates: start: 20030926
  2. REMICADE [Suspect]
     Indication: RHEUMATOID ARTHRITIS
     Dosage: 3 MG/KG, INTRAVENOUS
     Route: 042
     Dates: start: 20031008
  3. REMICADE [Suspect]
     Indication: RHEUMATOID ARTHRITIS
     Dosage: 3 MG/KG, INTRAVENOUS
     Route: 042
     Dates: start: 20031229
  4. REMICADE [Suspect]
     Indication: RHEUMATOID ARTHRITIS
     Dosage: 3 MG/KG, INTRAVENOUS
     Route: 042
     Dates: start: 20040204
  5. REMICADE [Suspect]
  6. REMICADE [Suspect]
  7. REMICADE [Suspect]
  8. PREDNISONE TAB [Concomitant]
  9. ACTONEL [Concomitant]
  10. MECLIZINE [Concomitant]
  11. DITROPAN [Concomitant]
  12. PROTONIX [Concomitant]
  13. COUMADIN [Concomitant]
  14. HYDROXYCHLOROQUINE SULFATE [Concomitant]
  15. ALLOPURINOL [Concomitant]
  16. FLOMAX [Concomitant]
  17. GLIPIZIDE [Concomitant]
  18. METHOTRAXATE (METHOTREXATE) [Concomitant]

REACTIONS (46)
  - ACID FAST BACILLI INFECTION [None]
  - ACIDOSIS [None]
  - ADRENAL INSUFFICIENCY [None]
  - ALANINE AMINOTRANSFERASE INCREASED [None]
  - ARTHROPATHY [None]
  - ASCITES [None]
  - ASPARTATE AMINOTRANSFERASE INCREASED [None]
  - BLOOD CHLORIDE DECREASED [None]
  - BLOOD PRESSURE SYSTOLIC INCREASED [None]
  - BLOOD SODIUM DECREASED [None]
  - BOWEL SOUNDS ABNORMAL [None]
  - BRADYCARDIA [None]
  - CANDIDIASIS [None]
  - CARDIAC ARREST [None]
  - CHEST X-RAY ABNORMAL [None]
  - COMPUTERISED TOMOGRAM ABNORMAL [None]
  - DEHYDRATION [None]
  - DIABETES MELLITUS NON-INSULIN-DEPENDENT [None]
  - DISSEMINATED INTRAVASCULAR COAGULATION [None]
  - DISSEMINATED TUBERCULOSIS [None]
  - FEELING ABNORMAL [None]
  - GASTROOESOPHAGEAL REFLUX DISEASE [None]
  - GRANULOMA [None]
  - HAEMATOCRIT DECREASED [None]
  - ILEUS [None]
  - LEUKOPENIA [None]
  - LIVER ABSCESS [None]
  - LIVER DISORDER [None]
  - LUNG INFILTRATION [None]
  - LYMPHADENOPATHY [None]
  - LYMPHADENOPATHY MEDIASTINAL [None]
  - METABOLIC ACIDOSIS [None]
  - MUCOSAL DRYNESS [None]
  - PANCREATITIS [None]
  - PLATELET COUNT DECREASED [None]
  - PLEURAL EFFUSION [None]
  - RENAL FAILURE ACUTE [None]
  - RENAL TUBULAR NECROSIS [None]
  - RHEUMATOID ARTHRITIS [None]
  - SEPTIC SHOCK [None]
  - SINUS TACHYCARDIA [None]
  - STAPHYLOCOCCAL INFECTION [None]
  - SYSTEMIC LUPUS ERYTHEMATOSUS [None]
  - TENDERNESS [None]
  - URINARY INCONTINENCE [None]
  - URINARY TRACT INFECTION [None]
